FAERS Safety Report 22337077 (Version 3)
Quarter: 2023Q2

REPORT INFORMATION
  Report Type: Report from Study
  Country: ZA (occurrence: ZA)
  Receive Date: 20230518
  Receipt Date: 20230630
  Transmission Date: 20230721
  Serious: Yes (Hospitalization, Other)
  Sender: FDA-Public Use
  Company Number: ZA-GILEAD-2023-0628679

PATIENT
  Age: 43 Year
  Sex: Male

DRUGS (4)
  1. BICTEGRAVIR\EMTRICITABINE\TENOFOVIR ALAFENAMIDE [Suspect]
     Active Substance: BICTEGRAVIR\EMTRICITABINE\TENOFOVIR ALAFENAMIDE
     Indication: HIV infection
     Dosage: UNK
     Route: 065
     Dates: start: 20230418
  2. BACTRIM [Concomitant]
     Active Substance: SULFAMETHOXAZOLE\TRIMETHOPRIM
  3. PYRIDOXINE [Concomitant]
     Active Substance: PYRIDOXINE
  4. FERROUS SULFATE [Concomitant]
     Active Substance: FERROUS SULFATE

REACTIONS (3)
  - Pneumothorax spontaneous [Unknown]
  - Pulmonary tuberculosis [Unknown]
  - Cystic lung disease [Unknown]

NARRATIVE: CASE EVENT DATE: 20230427
